FAERS Safety Report 4365966-7 (Version None)
Quarter: 2004Q2

REPORT INFORMATION
  Report Type: 
  Country: None (occurrence: None)
  Receive Date: 20040526
  Receipt Date: 20040526
  Transmission Date: 20050107
  Serious: Yes (Other)
  Sender: FDA-Public Use
  Company Number: None

PATIENT
  Age: 42 Year
  Sex: Male

DRUGS (6)
  1. OXYCODONE ER 80 MG TEVA [Suspect]
     Indication: PAIN
     Dosage: 80 MG TID ORAL
     Route: 048
     Dates: start: 20040512, end: 20040518
  2. OXYCODONE ER 80 MG TEVA [Suspect]
     Indication: SPONDYLOSIS
     Dosage: 80 MG TID ORAL
     Route: 048
     Dates: start: 20040512, end: 20040518
  3. OXYCONTIN [Concomitant]
  4. ROXICODONE [Concomitant]
  5. LIDODERM [Concomitant]
  6. FLEXERIL [Concomitant]

REACTIONS (3)
  - IMPAIRED DRIVING ABILITY [None]
  - PHARMACEUTICAL PRODUCT COMPLAINT [None]
  - SOMNOLENCE [None]
